FAERS Safety Report 25049005 (Version 1)
Quarter: 2025Q1

REPORT INFORMATION
  Report Type: Spontaneous
  Country: US (occurrence: US)
  Receive Date: 20250307
  Receipt Date: 20250307
  Transmission Date: 20250409
  Serious: Yes (Other)
  Sender: COOPERSURGICAL
  Company Number: US-COOPERSURGICAL, INC.-2025CPS001412

PATIENT
  Age: 31 Year
  Sex: Female
  Weight: 56.689 kg

DRUGS (3)
  1. PARAGARD T 380A [Suspect]
     Active Substance: COPPER
     Indication: Contraception
     Route: 015
     Dates: start: 20151215, end: 20231025
  2. ATENOLOL [Concomitant]
     Active Substance: ATENOLOL
     Dates: start: 2016
  3. SOTALOL [Concomitant]
     Active Substance: SOTALOL
     Dates: start: 2020

REACTIONS (15)
  - Reproductive complication associated with device [Not Recovered/Not Resolved]
  - Device breakage [Recovered/Resolved]
  - Foreign body in reproductive tract [Recovered/Resolved]
  - Complication of device removal [Recovered/Resolved]
  - Lymphadenopathy [Recovered/Resolved]
  - Inflammation [Recovered/Resolved]
  - Emotional distress [Unknown]
  - Pelvic floor dysfunction [Not Recovered/Not Resolved]
  - Hypertonic bladder [Not Recovered/Not Resolved]
  - Heavy menstrual bleeding [Unknown]
  - Dysmenorrhoea [Unknown]
  - Pelvic pain [Not Recovered/Not Resolved]
  - Nausea [Unknown]
  - Pain [Unknown]
  - Muscle spasms [Unknown]

NARRATIVE: CASE EVENT DATE: 20160201
